FAERS Safety Report 4434725-9 (Version None)
Quarter: 2004Q3

REPORT INFORMATION
  Report Type: 
  Country: None (occurrence: None)
  Receive Date: 20040827
  Receipt Date: 20040607
  Transmission Date: 20050211
  Serious: No
  Sender: FDA-Public Use
  Company Number: US-BRISTOL-MYERS SQUIBB COMPANY-12607651

PATIENT
  Age: 62 Year
  Sex: Male
  Weight: 91 kg

DRUGS (7)
  1. DEFINITY [Suspect]
     Indication: ULTRASOUND SCAN
     Route: 040
     Dates: start: 20040607
  2. LOPRESSOR [Concomitant]
  3. LIPITOR [Concomitant]
  4. LISINOPRIL [Concomitant]
  5. PLAVIX [Concomitant]
  6. ASPIRIN [Concomitant]
  7. PRILOSEC [Concomitant]

REACTIONS (1)
  - BACK PAIN [None]
